FAERS Safety Report 20608380 (Version 2)
Quarter: 2022Q2

REPORT INFORMATION
  Report Type: Report from Study
  Country: US (occurrence: US)
  Receive Date: 20220317
  Receipt Date: 20220401
  Transmission Date: 20220721
  Serious: Yes (Death, Hospitalization)
  Sender: FDA-Public Use
  Company Number: US-ABBVIE-22K-163-4319466-00

PATIENT
  Sex: Male

DRUGS (4)
  1. IMBRUVICA [Suspect]
     Active Substance: IBRUTINIB
     Indication: Chronic lymphocytic leukaemia
     Route: 048
     Dates: start: 202109, end: 20220214
  2. IMBRUVICA [Suspect]
     Active Substance: IBRUTINIB
     Route: 048
     Dates: start: 20220220, end: 20220303
  3. MODERNA COVID-19 VACCINE [Suspect]
     Active Substance: ELASOMERAN
     Indication: COVID-19 immunisation
     Dosage: 1ST DOSE
     Route: 030
     Dates: start: 20210312, end: 20210312
  4. MODERNA COVID-19 VACCINE [Suspect]
     Active Substance: ELASOMERAN
     Dosage: 2ND DOSE
     Route: 030
     Dates: start: 20210409, end: 20210409

REACTIONS (16)
  - Multiple organ dysfunction syndrome [Fatal]
  - Cough [Fatal]
  - Hypoxia [Fatal]
  - Respiratory failure [Fatal]
  - Back pain [Fatal]
  - Splenomegaly [Fatal]
  - Platelet count decreased [Fatal]
  - Red blood cell count decreased [Fatal]
  - Jaundice [Fatal]
  - Renal failure [Fatal]
  - COVID-19 [Fatal]
  - Atrial fibrillation [Fatal]
  - Fungaemia [Fatal]
  - Antibody test negative [Unknown]
  - Chronic lymphocytic leukaemia [Unknown]
  - Pneumonia [Unknown]

NARRATIVE: CASE EVENT DATE: 20220101
